FAERS Safety Report 10111006 (Version 1)
Quarter: 2014Q2

REPORT INFORMATION
  Report Type: Spontaneous
  Country: US (occurrence: None)
  Receive Date: 20140424
  Receipt Date: 20140424
  Transmission Date: 20141212
  Serious: Yes (Other)
  Sender: FDA-Public Use
  Company Number: None

PATIENT
  Age: 38 Year
  Sex: Female
  Weight: 63.5 kg

DRUGS (3)
  1. MUCINEX DM [Suspect]
     Indication: NASAL CONGESTION
     Dosage: 1200 MG GAIFENESIN, 60 MG DEXTROMETHORAIAN 1 PILL EVERY 12 HOURS BY MOUTH
     Route: 048
     Dates: start: 20140331, end: 20140331
  2. ADVAIR [Concomitant]
  3. SPIRIVA [Concomitant]

REACTIONS (4)
  - Feeling jittery [None]
  - Nausea [None]
  - Tinnitus [None]
  - Burning sensation [None]
